FAERS Safety Report 9154648 (Version 1)
Quarter: 2013Q1

REPORT INFORMATION
  Report Type: Spontaneous
  Country: US (occurrence: US)
  Receive Date: 20130311
  Receipt Date: 20130311
  Transmission Date: 20140127
  Serious: Yes (Hospitalization)
  Sender: FDA-Public Use
  Company Number: PHEH2013US005435

PATIENT
  Sex: Female

DRUGS (1)
  1. ILARIS [Suspect]

REACTIONS (2)
  - Sepsis [Unknown]
  - Abscess [Unknown]
